FAERS Safety Report 7306497-1 (Version None)
Quarter: 2011Q1

REPORT INFORMATION
  Report Type: 
  Country: None (occurrence: None)
  Receive Date: 20110210
  Receipt Date: 20110202
  Transmission Date: 20110831
  Serious: Yes (Death)
  Sender: FDA-Public Use
  Company Number: TRP_07545_2011

PATIENT
  Age: 5 Year
  Sex: Male

DRUGS (2)
  1. ANTIMONY SODIUM GLUCONATE (SODIUM ANTIMONY GLUCONATE) [Suspect]
     Indication: VISCERAL LEISHMANIASIS
     Dosage: (20 MG/KG QD INTRAMUSCULAR)
     Route: 030
  2. AMPHOTERICIN B [Suspect]
     Indication: VISCERAL LEISHMANIASIS
     Dosage: (0.25 MG/KG PER DAY FOR 4 DAYS [BUILT UP TO 1 MG/KG/D] INTRAVENOUS (NOT OTHERWISE SPECIFIED)
     Route: 042

REACTIONS (8)
  - ARRHYTHMIA [None]
  - CARDIOTOXICITY [None]
  - HEPATOSPLENOMEGALY [None]
  - CARDIAC ARREST [None]
  - PYREXIA [None]
  - PALLOR [None]
  - PANCYTOPENIA [None]
  - SUDDEN DEATH [None]
